FAERS Safety Report 7399415-1 (Version None)
Quarter: 2011Q2

REPORT INFORMATION
  Report Type: 
  Country: None (occurrence: None)
  Receive Date: 20110407
  Receipt Date: 20110324
  Transmission Date: 20111010
  Serious: Yes (Hospitalization, Other)
  Sender: FDA-Public Use
  Company Number: PHHY2010IE10096

PATIENT
  Sex: Male

DRUGS (4)
  1. EFFEXOR XR [Concomitant]
     Indication: DEPRESSION
     Dosage: 150 MG, DAILY
     Route: 048
  2. EFFEXOR XR [Concomitant]
     Dosage: 225 MG, UNK
     Route: 048
  3. CLOZARIL [Suspect]
     Dosage: 100MG MANE, 175MG NOCTE,
     Route: 048
  4. CLOZARIL [Suspect]
     Indication: SCHIZOPHRENIA
     Dosage: UNK MG, UNK
     Route: 048
     Dates: start: 20050919

REACTIONS (6)
  - HAEMOGLOBIN DECREASED [None]
  - COLITIS ULCERATIVE [None]
  - NEUTROPHIL COUNT INCREASED [None]
  - CROHN'S DISEASE [None]
  - RECTAL CANCER [None]
  - WHITE BLOOD CELL COUNT INCREASED [None]
